FAERS Safety Report 15338400 (Version 1)
Quarter: 2018Q3

REPORT INFORMATION
  Report Type: Spontaneous
  Country: US (occurrence: US)
  Receive Date: 20180831
  Receipt Date: 20180831
  Transmission Date: 20181010
  Serious: Yes (Hospitalization, Disabling)
  Sender: FDA-Public Use
  Company Number: US-JNJFOC-20180837791

PATIENT
  Age: 58 Year
  Sex: Male

DRUGS (1)
  1. INVOKANA [Suspect]
     Active Substance: CANAGLIFLOZIN
     Indication: TYPE 2 DIABETES MELLITUS
     Route: 048
     Dates: start: 20150202

REACTIONS (8)
  - Vomiting [Unknown]
  - Neuropathic arthropathy [Unknown]
  - Visual impairment [Unknown]
  - Cellulitis [Unknown]
  - Leg amputation [Unknown]
  - Gangrene [Unknown]
  - Nausea [Unknown]
  - Abscess limb [Unknown]

NARRATIVE: CASE EVENT DATE: 20160929
